FAERS Safety Report 15902886 (Version 2)
Quarter: 2019Q1

REPORT INFORMATION
  Report Type: Report from Study
  Country: IT (occurrence: IT)
  Receive Date: 20190202
  Receipt Date: 20190222
  Transmission Date: 20190417
  Serious: Yes (Other)
  Sender: FDA-Public Use
  Company Number: IT-ACCORD-105057

PATIENT
  Age: 76 Year
  Sex: Male
  Weight: 59 kg

DRUGS (1)
  1. GEMCITABINE ACCORD [Suspect]
     Active Substance: GEMCITABINE HYDROCHLORIDE
     Indication: ADENOCARCINOMA PANCREAS
     Dosage: STRENGTH: 100 MG / ML
     Route: 042
     Dates: start: 20180409

REACTIONS (4)
  - Neutropenia [Recovering/Resolving]
  - Leukopenia [Recovering/Resolving]
  - Anaemia [Recovering/Resolving]
  - Erythropenia [Recovering/Resolving]

NARRATIVE: CASE EVENT DATE: 20180416
